FAERS Safety Report 23745957 (Version 2)
Quarter: 2024Q2

REPORT INFORMATION
  Report Type: Spontaneous
  Country: FR (occurrence: FR)
  Receive Date: 20240416
  Receipt Date: 20240429
  Transmission Date: 20240716
  Serious: Yes (Hospitalization, Other)
  Sender: FDA-Public Use
  Company Number: FR-EMA-DD-20240405-7482705-120542

PATIENT
  Age: 51 Year
  Sex: Male

DRUGS (18)
  1. TACROLIMUS [Suspect]
     Active Substance: TACROLIMUS
     Indication: Immunosuppressant drug therapy
     Dosage: 0.2 MILLIGRAM/KILOGRAM, QD, 0.1 MG/KG, TWICE DAILY
  2. TACROLIMUS [Suspect]
     Active Substance: TACROLIMUS
     Indication: Renal transplant
     Dosage: 0.25 MILLIGRAM/KILOGRAM, QD, 0.125 MG/KG, TWICE DAILY
  3. TACROLIMUS [Suspect]
     Active Substance: TACROLIMUS
     Dosage: 17 MILLIGRAM, QD, AT DAY 30
  4. TACROLIMUS [Suspect]
     Active Substance: TACROLIMUS
     Dosage: 10 MILLIGRAM, QD, AT DAY 60 AND 120
  5. TACROLIMUS [Suspect]
     Active Substance: TACROLIMUS
     Dosage: 8 MILLIGRAM, QD, AT DAY 150 AND 365
  6. TACROLIMUS [Suspect]
     Active Substance: TACROLIMUS
     Dosage: 6 MILLIGRAM, QD, AT DAY 730 AND 1095
  7. PREDNISOLONE [Suspect]
     Active Substance: PREDNISOLONE
     Indication: Renal transplant
     Dosage: 1 MILLIGRAM/KILOGRAM, QD
  8. PREDNISOLONE [Suspect]
     Active Substance: PREDNISOLONE
     Dosage: 10 MILLIGRAM, QD
     Route: 065
  9. METHYLPREDNISOLONE [Suspect]
     Active Substance: METHYLPREDNISOLONE
     Indication: Immunosuppressant drug therapy
     Dosage: UNK
     Route: 042
  10. METHYLPREDNISOLONE [Suspect]
     Active Substance: METHYLPREDNISOLONE
     Dosage: UNK
     Route: 065
  11. MYCOPHENOLIC ACID [Suspect]
     Active Substance: MYCOPHENOLIC ACID
     Indication: Renal transplant
     Dosage: 1440 MILLIGRAM, QD, DAY ONE AND DAY 30
  12. MYCOPHENOLIC ACID [Suspect]
     Active Substance: MYCOPHENOLIC ACID
     Indication: Immunosuppressant drug therapy
     Dosage: 2 GRAM, QD, DAY 60 ONWARDS
  13. THYMOGLOBULINE [Suspect]
     Active Substance: LAPINE T-LYMPHOCYTE IMMUNE GLOBULIN
     Indication: Renal transplant
     Dosage: UNK UNK, UNKNOWN FREQUENCY, TOTAL DOSE: 300 MG
  14. THYMOGLOBULINE [Suspect]
     Active Substance: LAPINE T-LYMPHOCYTE IMMUNE GLOBULIN
     Indication: Immunosuppressant drug therapy
  15. BASILIXIMAB [Concomitant]
     Active Substance: BASILIXIMAB
     Indication: Renal transplant
     Dosage: UNK UNK, UNKNOWN FREQ, DAY0 AND DAY4
  16. LAMIVUDINE [Concomitant]
     Active Substance: LAMIVUDINE
     Indication: HIV infection
     Dosage: UNK UNK, UNKNOWN FREQ.
  17. EFAVIRENZ [Concomitant]
     Active Substance: EFAVIRENZ
     Indication: HIV infection
     Dosage: UNK UNK, UNKNOWN FREQ.
  18. ABACAVIR [Concomitant]
     Active Substance: ABACAVIR
     Indication: HIV infection
     Dosage: UNK UNK, UNKNOWN FREQ.

REACTIONS (8)
  - Donor specific antibody present [Recovered/Resolved]
  - Histology abnormal [Recovered/Resolved]
  - Graft complication [Recovered/Resolved]
  - Transplant rejection [Unknown]
  - Viral test positive [Recovered/Resolved]
  - Neutropenia [Recovered/Resolved]
  - Polyomavirus-associated nephropathy [Unknown]
  - BK virus infection [Recovered/Resolved]
